FAERS Safety Report 7819547-0 (Version None)
Quarter: 2011Q4

REPORT INFORMATION
  Report Type: 
  Country: None (occurrence: None)
  Receive Date: 20111018
  Receipt Date: 20111005
  Transmission Date: 20120403
  Serious: Yes (Other)
  Sender: FDA-Public Use
  Company Number: JP-SANOFI-AVENTIS-2011SA066641

PATIENT
  Age: 53 Year
  Sex: Female

DRUGS (7)
  1. CARBOPLATIN [Suspect]
     Dosage: 9 CYCLES WITH DOCETAXEL
     Route: 065
  2. NEUPOGEN [Concomitant]
     Route: 065
     Dates: start: 20040101
  3. IRINOTECAN HCL [Suspect]
     Dosage: 6 CYCLES OF CISPLATIN AND IRINOTECAN
     Route: 065
     Dates: end: 20060101
  4. CARBOPLATIN [Suspect]
     Dosage: RECEIVED 7 CYCLES WITH PACLITAXEL
     Route: 065
     Dates: start: 20040101
  5. PACLITAXEL [Suspect]
     Dosage: 7 CYCLES OF CARBOPLATIN AND PACLITAXEL
     Route: 065
  6. DOCETAXEL [Suspect]
     Dosage: 9 CYCLES OF CARBOPLATIN AND DOCETAXEL
     Route: 065
  7. CISPLATIN [Suspect]
     Dosage: 6 CYCLES OF CISPLATIN AND IRINOTECAN
     Route: 065
     Dates: end: 20060101

REACTIONS (1)
  - ACUTE LEUKAEMIA [None]
